FAERS Safety Report 9274377 (Version 1)
Quarter: 2013Q2

REPORT INFORMATION
  Report Type: Spontaneous
  Country: US (occurrence: US)
  Receive Date: 20130506
  Receipt Date: 20130506
  Transmission Date: 20140414
  Serious: No
  Sender: FDA-Public Use
  Company Number: US-AMGEN-USASP2013028693

PATIENT
  Age: 57 Year
  Sex: Female
  Weight: 45.35 kg

DRUGS (7)
  1. ENBREL [Suspect]
     Indication: RHEUMATOID ARTHRITIS
     Dosage: 50 MG, QWK
     Route: 058
     Dates: start: 20130402
  2. PLAQUENIL                          /00072602/ [Concomitant]
     Dosage: 200 MG, UNK
  3. NABUMETONE [Concomitant]
     Dosage: 750 MG, UNK
  4. VITAMIN B COMPLEX [Concomitant]
     Dosage: UNK
  5. MULTIVITAMINS, PLAIN [Concomitant]
     Dosage: UNK
  6. ASPIRIN [Concomitant]
     Dosage: 81 MG, UNK
  7. GARLIC                             /01570501/ [Concomitant]
     Dosage: 10 MG, UNK

REACTIONS (1)
  - Injection site erythema [Not Recovered/Not Resolved]
